FAERS Safety Report 21684964 (Version 1)
Quarter: 2022Q4

REPORT INFORMATION
  Report Type: Spontaneous
  Country: GB (occurrence: GB)
  Receive Date: 20221205
  Receipt Date: 20221205
  Transmission Date: 20230112
  Serious: Yes (Other)
  Sender: FDA-Public Use
  Company Number: GB-BIOGEN-2022BI01154370

PATIENT
  Age: 51 Year
  Sex: Female

DRUGS (4)
  1. PLEGRIDY [Suspect]
     Active Substance: PEGINTERFERON BETA-1A
     Indication: Multiple sclerosis
     Dosage: ON DAY ONE TITRATION
     Route: 050
     Dates: start: 20220817
  2. PLEGRIDY [Suspect]
     Active Substance: PEGINTERFERON BETA-1A
     Dosage: 94MCG / 0.5ML FREQUENCY OTHER 94MCG (BLUE PEN) (TITRATION)
     Route: 050
     Dates: start: 2022
  3. PLEGRIDY [Suspect]
     Active Substance: PEGINTERFERON BETA-1A
     Dosage: 125MCG / 0.5ML
     Route: 050
     Dates: start: 2022
  4. PLEGRIDY [Suspect]
     Active Substance: PEGINTERFERON BETA-1A
     Route: 050

REACTIONS (17)
  - Cardiac flutter [Unknown]
  - Pain in extremity [Unknown]
  - Hot flush [Unknown]
  - Dizziness [Unknown]
  - Cold sweat [Unknown]
  - Fatigue [Unknown]
  - Rash erythematous [Recovered/Resolved]
  - Mood altered [Unknown]
  - Heart rate increased [Unknown]
  - Tremor [Unknown]
  - Multiple sclerosis [Unknown]
  - Pain in extremity [Unknown]
  - Muscle tightness [Unknown]
  - Asthenia [Unknown]
  - Headache [Unknown]
  - Injection site pruritus [Unknown]
  - Depression [Unknown]

NARRATIVE: CASE EVENT DATE: 20220101
